FAERS Safety Report 16252152 (Version 2)
Quarter: 2019Q2

REPORT INFORMATION
  Report Type: Spontaneous
  Country: FR (occurrence: FR)
  Receive Date: 20190429
  Receipt Date: 20190503
  Transmission Date: 20190711
  Serious: Yes (Hospitalization)
  Sender: FDA-Public Use
  Company Number: FR-PFIZER INC-2019176014

PATIENT
  Age: 77 Year
  Sex: Male
  Weight: 72 kg

DRUGS (3)
  1. CISPLATIN. [Suspect]
     Active Substance: CISPLATIN
     Dosage: 120 MG, EVERY 3 WEEKS
     Route: 041
     Dates: start: 20120605, end: 20120702
  2. CARBOPLATIN. [Suspect]
     Active Substance: CARBOPLATIN
     Indication: SMALL CELL LUNG CANCER
     Dosage: 149.01 MG, EVERY 3 WEEKS
     Route: 041
     Dates: start: 20120725
  3. ETOPOSIDE. [Suspect]
     Active Substance: ETOPOSIDE
     Indication: SMALL CELL LUNG CANCER
     Dosage: 450 MG, EVERY 3 WEEKS
     Route: 041
     Dates: start: 20120605

REACTIONS (2)
  - Anaemia [Recovered/Resolved]
  - Renal failure [Not Recovered/Not Resolved]

NARRATIVE: CASE EVENT DATE: 20120814
